FAERS Safety Report 8320580-3 (Version None)
Quarter: 2012Q2

REPORT INFORMATION
  Report Type: 
  Country: None (occurrence: None)
  Receive Date: 20120430
  Receipt Date: 20120423
  Transmission Date: 20120825
  Serious: Yes (Other)
  Sender: FDA-Public Use
  Company Number: CA-PFIZER INC-2012087389

PATIENT
  Age: 55 Year
  Sex: Male
  Weight: 92 kg

DRUGS (21)
  1. DOCUSATE SODIUM [Concomitant]
     Dosage: 100 MG, 1-2 CAPSULES IN THE MORNING AND AT BEDTIME AS NEEDED (2 CAPS AT BEDTIME)
     Dates: start: 20110915
  2. DEMEROL [Concomitant]
     Indication: PAIN
     Dosage: 50 MG, EVERY 3-4 HRS AS NEEDED
     Dates: start: 20120331
  3. ZYLOPRIM [Concomitant]
     Dosage: 200 MG, 1X/DAY AT BREAKFAST
     Dates: start: 20111111
  4. TYLENOL ARTHRITIS [Concomitant]
     Dosage: 650 UNK, 1-2 CAPLETS EVERY 8 HOURS IF SYMPTOMS
     Dates: start: 20100222
  5. APO-TRAMACET [Concomitant]
     Dosage: UNK
  6. FLOMAX [Concomitant]
     Dosage: 0.4 MG, 1X/DAY AT DINNER
     Dates: start: 20110915
  7. LANSOPRAZOLE [Concomitant]
     Dosage: 30 MG, 1X/DAY 30 MINUTES BEFORE BREAKFAST IF NEEDED
     Dates: start: 20110915
  8. SYNTHROID [Concomitant]
     Dosage: 0.05 MG, 1X/DAY IN THE MORNING
     Dates: start: 20110921
  9. METHOTREXATE [Concomitant]
     Dosage: 2.5MG X 8 TABLETS 1X/WEEK ON WEDNESDAYS AT BEDTIME
     Dates: start: 20120301
  10. CANDESARTAN [Concomitant]
     Dosage: 8 MG, 1X/DAY AT BREAKFAST
     Dates: start: 20110915
  11. MELOXICAM [Concomitant]
     Dosage: 7.5 MG, 1-2 TABLETS 1X/DAY WITH FOOD IF NEEDED (1 TABLET ONLY IN THE MORNING)
     Dates: start: 20110915
  12. EURO FOLIC [Concomitant]
     Dosage: 5 MG, 1X/DAY IN THE MORNING EXCEPT FOR THE DAY TAKING METHOTREXATE
     Dates: start: 20110915
  13. LYRICA [Suspect]
     Indication: PAIN
     Dosage: 75MG, 2 -3 CAPSULES AT BEDTIME
     Route: 048
     Dates: start: 20110915
  14. LORAZEPAM [Concomitant]
     Dosage: 1.5 MG, 1X/DAY 1/2 HOUR BEFORE BEDTIME IF NEEDED
     Route: 048
     Dates: start: 20110915
  15. ULTRAM [Concomitant]
     Dosage: 50 MG, 1-2 TABLETS EVERY 4- 6 HRS AS NEEDED (MAX 8 TABLETS/DAY) 1 TABLET BEFORE BED
     Dates: start: 20110915
  16. LYRICA [Suspect]
     Indication: SPINAL COMPRESSION FRACTURE
     Dosage: 150 MG 1 CAPSULE AT BEDTIME
     Route: 048
     Dates: start: 20120402, end: 20120403
  17. ATENOLOL [Concomitant]
     Indication: HYPERTENSION
     Dosage: 100 MG, 1X/DAY AT DINNER
     Dates: start: 20110915
  18. METFORMIN [Concomitant]
     Dosage: 500MG (1/2 TABLET 2X/DAY, BREAKFAST AND DINNER)
     Dates: start: 20110915
  19. TRAZODONE [Concomitant]
     Dosage: 50 MG, 1X/DAY 1/2 HOUR BEFORE BEDTIME
     Route: 048
     Dates: start: 20110915
  20. HUMIRA [Concomitant]
     Dosage: 40MG/0.8ML BY INJECTION EVERY 14 DAYS
     Dates: start: 20110915
  21. HYDROXYZINE [Concomitant]
     Dosage: 25 MG, 1X/DAY AT NIGHT IF NEEDED
     Dates: start: 20110915

REACTIONS (6)
  - CHEST PAIN [None]
  - PHARYNGEAL MASS [None]
  - PRURITUS [None]
  - HYPERSENSITIVITY [None]
  - FEELING HOT [None]
  - ERYTHEMA [None]
